FAERS Safety Report 8092297-4 (Version None)
Quarter: 2012Q1

REPORT INFORMATION
  Report Type: 
  Country: None (occurrence: None)
  Receive Date: 20120129
  Receipt Date: 20111207
  Transmission Date: 20120608
  Serious: No
  Sender: FDA-Public Use
  Company Number: US-ABBOTT-11P-163-0877108-00

PATIENT
  Sex: Female

DRUGS (4)
  1. BENADRYL [Concomitant]
     Indication: URTICARIA
     Dates: start: 20110808
  2. HUMIRA [Suspect]
     Route: 058
     Dates: start: 20110731, end: 20110731
  3. HUMIRA [Suspect]
     Indication: PRODUCT USED FOR UNKNOWN INDICATION
     Dates: start: 20070801, end: 20071001
  4. BENADRYL [Concomitant]
     Indication: LIP SWELLING

REACTIONS (4)
  - PSORIASIS [None]
  - URTICARIA [None]
  - HYPERSENSITIVITY [None]
  - LIP SWELLING [None]
